FAERS Safety Report 9427905 (Version 3)
Quarter: 2013Q4

REPORT INFORMATION
  Report Type: Spontaneous
  Country: US (occurrence: US)
  Receive Date: 20130730
  Receipt Date: 20131018
  Transmission Date: 20140711
  Serious: No
  Sender: FDA-Public Use
  Company Number: US-PFIZER INC-2013218974

PATIENT
  Age: 56 Year
  Sex: Female
  Weight: 90.7 kg

DRUGS (11)
  1. CADUET [Suspect]
     Indication: HYPERTENSION
     Dosage: [AMLODIPINE BESILATE 5 MG]/ [ATORVASTATIN CALCIUM 10 MG], 1X/DAY
     Route: 048
     Dates: end: 2013
  2. CADUET [Suspect]
     Indication: BLOOD CHOLESTEROL INCREASED
     Dosage: [AMLODIPINE BESILATE 5 MG]/ [ATORVASTATIN CALCIUM 10 MG], 1X/DAY
     Route: 048
     Dates: start: 2013
  3. AMLODIPINE/ATORVASTATIN [Suspect]
     Indication: HYPERTENSION
     Dosage: [AMLODIPINE BESILATE 5 MG]/ [ATORVASTATIN CALCIUM 10 MG], 1X/DAY
     Route: 048
     Dates: start: 2013, end: 2013
  4. AMLODIPINE/ATORVASTATIN [Suspect]
     Indication: BLOOD CHOLESTEROL INCREASED
  5. TEKTURNA [Concomitant]
     Indication: HYPERTENSION
     Dosage: UNK
  6. ATACAND HCT [Concomitant]
     Indication: HYPERTENSION
     Dosage: [CANDESARTAN CILEXETIL 32]/ [HYDROCHLOROTHIAZIDE 12.5], 1X/DAY
  7. ADVAIR [Concomitant]
     Indication: ASTHMA
     Dosage: [FLUTICASONE PROPIONATE 250]/ [SALMETEROL XINAFOATE 50], 2X/DAY
     Dates: start: 2010
  8. LEXAPRO [Concomitant]
     Indication: ANXIETY
     Dosage: 10 MG, DAILY
  9. SINGULAIR [Concomitant]
     Indication: ASTHMA
     Dosage: 10 MG, DAILY
     Dates: start: 2011
  10. SPIRIVA [Concomitant]
     Dosage: UNK, DAILY
     Dates: start: 2011
  11. FLONASE [Concomitant]
     Dosage: UNK, 2X/DAY
     Dates: start: 2008

REACTIONS (4)
  - Hypersensitivity [Recovered/Resolved]
  - Pruritus [Recovered/Resolved]
  - Blood potassium decreased [Unknown]
  - Heart rate increased [Recovered/Resolved]
